FAERS Safety Report 7721574-9 (Version None)
Quarter: 2011Q3

REPORT INFORMATION
  Report Type: 
  Country: None (occurrence: None)
  Receive Date: 20110831
  Receipt Date: 20110824
  Transmission Date: 20111222
  Serious: Yes (Hospitalization)
  Sender: FDA-Public Use
  Company Number: US-BAYER-2011-023340

PATIENT
  Age: 55 Year
  Sex: Female
  Weight: 72.562 kg

DRUGS (5)
  1. VITAMINS NOS [Concomitant]
     Dosage: UNK
     Dates: start: 20090201, end: 20090227
  2. YAZ [Suspect]
     Indication: DYSFUNCTIONAL UTERINE BLEEDING
     Dosage: UNK
     Route: 048
     Dates: start: 20081001, end: 20090201
  3. ADVIL LIQUI-GELS [Concomitant]
  4. MOTRIN [Concomitant]
  5. LEVOXYL [Concomitant]
     Indication: HYPOTHYROIDISM
     Dosage: 75 MG, QD
     Dates: start: 20080223

REACTIONS (17)
  - THROMBOSIS [None]
  - ASTHENIA [None]
  - PAIN IN EXTREMITY [None]
  - OEDEMA PERIPHERAL [None]
  - FLUID RETENTION [None]
  - STRESS [None]
  - MENOPAUSAL SYMPTOMS [None]
  - ANXIETY [None]
  - INJURY [None]
  - DYSPNOEA [None]
  - PULMONARY EMBOLISM [None]
  - PAIN [None]
  - EMOTIONAL DISTRESS [None]
  - GENERAL PHYSICAL HEALTH DETERIORATION [None]
  - PARAESTHESIA [None]
  - CHEST DISCOMFORT [None]
  - FEAR OF DISEASE [None]
